FAERS Safety Report 21213382 (Version 4)
Quarter: 2023Q1

REPORT INFORMATION
  Report Type: Report from Study
  Country: US (occurrence: US)
  Receive Date: 20220815
  Receipt Date: 20230310
  Transmission Date: 20230417
  Serious: Yes (Hospitalization, Other)
  Sender: FDA-Public Use
  Company Number: US-ABBVIE-22K-163-4503979-00

PATIENT
  Sex: Female

DRUGS (6)
  1. IMBRUVICA [Suspect]
     Active Substance: IBRUTINIB
     Indication: Chronic lymphocytic leukaemia
     Route: 048
     Dates: start: 202009
  2. IMBRUVICA [Suspect]
     Active Substance: IBRUTINIB
     Indication: Chronic lymphocytic leukaemia
     Route: 048
     Dates: start: 202209
  3. PFIZER-BIONTECH COVID-19 VACCINE [Concomitant]
     Active Substance: TOZINAMERAN
     Indication: COVID-19 immunisation
     Dosage: FIRST DOSE?FREQUENCY: ONCE
     Route: 030
     Dates: start: 20210125, end: 20210125
  4. PFIZER-BIONTECH COVID-19 VACCINE [Concomitant]
     Active Substance: TOZINAMERAN
     Indication: COVID-19 immunisation
     Dosage: SECOND DOSE?FREQUENCY: ONCE
     Route: 030
     Dates: start: 20210215, end: 20210215
  5. PFIZER-BIONTECH COVID-19 VACCINE [Concomitant]
     Active Substance: TOZINAMERAN
     Indication: COVID-19 immunisation
     Dosage: BOOSTER DOSE?FREQUENCY: ONCE
     Route: 030
     Dates: start: 20211007, end: 20211007
  6. FISH OIL [Concomitant]
     Active Substance: FISH OIL
     Indication: Dry eye

REACTIONS (13)
  - Spinal compression fracture [Recovered/Resolved]
  - Dry eye [Unknown]
  - Unevaluable event [Unknown]
  - Pain [Unknown]
  - Contusion [Unknown]
  - Urinary tract infection [Unknown]
  - Increased tendency to bruise [Unknown]
  - Irritable bowel syndrome [Unknown]
  - Vertebroplasty [Unknown]
  - Basal cell carcinoma [Unknown]
  - Spondylitis [Unknown]
  - Back pain [Unknown]
  - Visual impairment [Unknown]

NARRATIVE: CASE EVENT DATE: 20220101
